FAERS Safety Report 7450915-5 (Version None)
Quarter: 2011Q2

REPORT INFORMATION
  Report Type: 
  Country: None (occurrence: None)
  Receive Date: 20110502
  Receipt Date: 20110427
  Transmission Date: 20111010
  Serious: Yes (Hospitalization)
  Sender: FDA-Public Use
  Company Number: FR-ROCHE-684143

PATIENT
  Sex: Female

DRUGS (3)
  1. AVASTIN [Suspect]
     Dosage: DRUG: AVASTIN 25 MG/ML DRIP SOLUTION; FORM: INFUSION
     Route: 042
     Dates: start: 20090310, end: 20090414
  2. FLUOROURACIL [Concomitant]
     Dosage: DRUG REPORTED AS FLUOROURACILE
     Dates: start: 20090115
  3. IRINOTECAN [Concomitant]
     Dates: start: 20090115

REACTIONS (4)
  - AGITATION [None]
  - ENCEPHALOPATHY [None]
  - DISORIENTATION [None]
  - VOMITING [None]
